FAERS Safety Report 8090482 (Version 5)
Quarter: 2013Q1

REPORT INFORMATION
  Report Type: Spontaneous
  Country: US (occurrence: US)
  Receive Date: 20110815
  Receipt Date: 20130304
  Transmission Date: 20140127
  Serious: Yes (Hospitalization)
  Sender: FDA-Public Use
  Company Number: US-ASTRAZENECA-2011SE47342

PATIENT
  Age: 68 Year
  Sex: Female

DRUGS (13)
  1. NEXIUM [Suspect]
     Route: 048
  2. PLAVIX [Concomitant]
  3. CYMBALTA [Concomitant]
  4. ZOFRAN [Concomitant]
  5. MEGASE [Concomitant]
  6. VICODIN [Concomitant]
  7. COREG [Concomitant]
  8. DICYCLOMINE [Concomitant]
  9. DIAZEPAM [Concomitant]
  10. LIDOCAINE [Concomitant]
  11. CALCIUM [Concomitant]
  12. VIT.D [Concomitant]
  13. VIT B-12 [Concomitant]

REACTIONS (18)
  - Hip fracture [Unknown]
  - Gastric disorder [Unknown]
  - Myocardial infarction [Unknown]
  - Cardiac failure congestive [Unknown]
  - Intestinal prolapse [Unknown]
  - Respiratory disorder [Unknown]
  - Dizziness [Unknown]
  - Mental impairment [Unknown]
  - Weight decreased [Unknown]
  - Neuropathy peripheral [Unknown]
  - Aphagia [Unknown]
  - Hernia [Unknown]
  - Bronchitis [Unknown]
  - Epistaxis [Unknown]
  - Cardiac disorder [Unknown]
  - Malaise [Unknown]
  - Vomiting [Unknown]
  - Drug dose omission [Unknown]
